FAERS Safety Report 5336082-2 (Version None)
Quarter: 2007Q1

REPORT INFORMATION
  Report Type: 
  Country: None (occurrence: None)
  Receive Date: 20070228
  Receipt Date: 20061122
  Transmission Date: 20070707
  Serious: Yes (Death)
  Sender: FDA-Public Use
  Company Number: PHO-2006-032

PATIENT
  Age: 68 Year
  Sex: Male

DRUGS (1)
  1. PHOTOFRIN [Suspect]
     Indication: ADENOCARCINOMA
     Dosage: 2MG/KG, IV
     Route: 042

REACTIONS (1)
  - OESOPHAGEAL STENOSIS [None]
